FAERS Safety Report 5621246-0 (Version None)
Quarter: 2008Q1

REPORT INFORMATION
  Report Type: 
  Country: None (occurrence: None)
  Receive Date: 20080114
  Receipt Date: 20070510
  Transmission Date: 20080703
  Serious: Yes (Other)
  Sender: FDA-Public Use
  Company Number: A03200703004

PATIENT
  Age: 79 Year
  Sex: Female

DRUGS (8)
  1. PLAVIX [Suspect]
     Indication: UNEVALUABLE EVENT
     Dosage: ORAL
     Route: 048
     Dates: start: 20020101, end: 20060801
  2. EZETIMIBE [Concomitant]
  3. LISINOPRIL [Concomitant]
  4. AMITRIPTYLINE HCL [Concomitant]
  5. MELOXICAM [Concomitant]
  6. ENALAPRIL MALEATE [Concomitant]
  7. COLCHICINE [Concomitant]
  8. AMLODIPINE [Concomitant]

REACTIONS (3)
  - CONFUSIONAL STATE [None]
  - ECCHYMOSIS [None]
  - TRANSIENT ISCHAEMIC ATTACK [None]
